FAERS Safety Report 11212643 (Version 1)
Quarter: 2015Q2

REPORT INFORMATION
  Report Type: Spontaneous
  Country: US (occurrence: None)
  Receive Date: 20150622
  Receipt Date: 20150622
  Transmission Date: 20150821
  Serious: Yes (Other)
  Sender: FDA-Public Use
  Company Number: None

PATIENT
  Age: 48 Year
  Sex: Female

DRUGS (4)
  1. BUPROPION 150XL [Concomitant]
  2. SAVELLA [Concomitant]
     Active Substance: MILNACIPRAN HYDROCHLORIDE
  3. BUPROPION 300XL [Suspect]
     Active Substance: BUPROPION
     Indication: DEPRESSION
     Dosage: 1 PER DAY 300 XL
     Route: 048
     Dates: start: 20150605, end: 20150610
  4. ETOLODAC [Concomitant]

REACTIONS (5)
  - Rash [None]
  - Hyperaesthesia [None]
  - Hyperhidrosis [None]
  - Hypersensitivity [None]
  - Product substitution issue [None]

NARRATIVE: CASE EVENT DATE: 20150610
